FAERS Safety Report 7469894-X (Version None)
Quarter: 2011Q2

REPORT INFORMATION
  Report Type: 
  Country: None (occurrence: None)
  Receive Date: 20110510
  Receipt Date: 20110503
  Transmission Date: 20111010
  Serious: Yes (Other)
  Sender: FDA-Public Use
  Company Number: US-SANOFI-AVENTIS-2011SA027975

PATIENT
  Age: 68 Year
  Sex: Male

DRUGS (15)
  1. CLONAZEPAM [Concomitant]
  2. SEROQUEL [Concomitant]
  3. WELLBUTRIN [Concomitant]
  4. MULTI-VITAMINS [Concomitant]
  5. PRAVASTATIN [Concomitant]
  6. POTASSIUM [Concomitant]
  7. PLAVIX [Suspect]
     Route: 048
     Dates: start: 20010101
  8. QUETIAPINE [Concomitant]
  9. VENLAFAXINE [Concomitant]
  10. MINOXIDIL [Concomitant]
  11. AMLODIPINE BESYLATE [Concomitant]
  12. TAMSULOSIN HCL [Concomitant]
  13. ZIPRASIDONE HYDROCHLORIDE [Concomitant]
  14. HYDROCHLOROTHIAZIDE [Concomitant]
  15. ATENOLOL [Concomitant]

REACTIONS (5)
  - EAR HAEMORRHAGE [None]
  - PERIPHERAL NERVE DECOMPRESSION [None]
  - HAEMORRHAGE [None]
  - POST PROCEDURAL HAEMORRHAGE [None]
  - HAEMARTHROSIS [None]
